FAERS Safety Report 12813690 (Version 1)
Quarter: 2016Q4

REPORT INFORMATION
  Report Type: Report from Study
  Country: US (occurrence: US)
  Receive Date: 20161006
  Receipt Date: 20161006
  Transmission Date: 20170207
  Serious: No
  Sender: FDA-Public Use
  Company Number: US-AMGEN-USASL2016110419

PATIENT
  Age: 69 Year
  Sex: Female

DRUGS (5)
  1. PROLIA [Suspect]
     Active Substance: DENOSUMAB
     Indication: OSTEOPOROSIS POSTMENOPAUSAL
     Dosage: 60 MG, Q6MO
     Route: 065
     Dates: start: 20160310
  2. VITAMIN D [Concomitant]
     Active Substance: CHOLECALCIFEROL
     Dosage: 1000 IU, UNK
  3. RISPERDAL [Suspect]
     Active Substance: RISPERIDONE
     Indication: PRODUCT USED FOR UNKNOWN INDICATION
     Dosage: 8 MG, UNK
     Route: 065
  4. CALCIUM [Concomitant]
     Active Substance: CALCIUM
     Dosage: 600 MG, UNK
  5. ASACOL HD [Concomitant]
     Active Substance: MESALAMINE
     Indication: CROHN^S DISEASE
     Dosage: 800 MG, UNK

REACTIONS (7)
  - Toothache [Unknown]
  - Sensitivity of teeth [Unknown]
  - Lip pain [Unknown]
  - Chest pain [Recovered/Resolved]
  - Musculoskeletal stiffness [Unknown]
  - Pain in jaw [Unknown]
  - Oral pain [Unknown]

NARRATIVE: CASE EVENT DATE: 201608
